FAERS Safety Report 15637942 (Version 1)
Quarter: 2018Q4

REPORT INFORMATION
  Report Type: Spontaneous
  Country: US (occurrence: US)
  Receive Date: 20181120
  Receipt Date: 20181120
  Transmission Date: 20190205
  Serious: No
  Sender: FDA-Public Use
  Company Number: US-JNJFOC-20180706841

PATIENT
  Age: 68 Year
  Sex: Male

DRUGS (4)
  1. PREDNISONE. [Concomitant]
     Active Substance: PREDNISONE
  2. IMBRUVICA [Concomitant]
     Active Substance: IBRUTINIB
     Route: 048
     Dates: start: 20180413, end: 20180524
  3. LEVAQUIN [Concomitant]
     Active Substance: LEVOFLOXACIN
  4. IMBRUVICA [Suspect]
     Active Substance: IBRUTINIB
     Indication: PRODUCT USED FOR UNKNOWN INDICATION
     Route: 048
     Dates: start: 20180525, end: 201806

REACTIONS (4)
  - Oesophageal spasm [Unknown]
  - Wheezing [Unknown]
  - Bone pain [Unknown]
  - Muscle spasms [Unknown]

NARRATIVE: CASE EVENT DATE: 201806
